FAERS Safety Report 5573597-6 (Version None)
Quarter: 2007Q4

REPORT INFORMATION
  Report Type: 
  Country: None (occurrence: None)
  Receive Date: 20071226
  Receipt Date: 20071220
  Transmission Date: 20080405
  Serious: Yes (Death)
  Sender: FDA-Public Use
  Company Number: GB-WYE-H01829807

PATIENT
  Age: 24 Year
  Sex: Male

DRUGS (1)
  1. ANADIN IBUPROFEN [Suspect]
     Indication: HEADACHE
     Dosage: 1 TABLET ONE TIME THE FIRST DAY AND 2 TABLETS THE FOLLOWING DAY
     Route: 048

REACTIONS (7)
  - ACUTE RESPIRATORY DISTRESS SYNDROME [None]
  - ARTERIAL HAEMORRHAGE [None]
  - MULTI-ORGAN FAILURE [None]
  - RENAL FAILURE ACUTE [None]
  - RESPIRATORY FAILURE [None]
  - SYSTEMIC INFLAMMATORY RESPONSE SYNDROME [None]
  - TOXIC EPIDERMAL NECROLYSIS [None]
